FAERS Safety Report 7542889-3 (Version None)
Quarter: 2011Q2

REPORT INFORMATION
  Report Type: 
  Country: None (occurrence: None)
  Receive Date: 20110524
  Receipt Date: 20110310
  Transmission Date: 20111010
  Serious: No
  Sender: FDA-Public Use
  Company Number: 024770

PATIENT
  Sex: Male
  Weight: 771 kg

DRUGS (6)
  1. PLAVIX [Concomitant]
  2. METOPROLOL TARTRATE [Concomitant]
  3. CIMZIA [Suspect]
     Indication: CROHN'S DISEASE
     Dosage: (INDUCTION DOSE SUBCUTANEOUS), (400 MG 1X/4 WEEKS SUBCUTANEOUS)
     Route: 058
     Dates: start: 20100831
  4. CIMZIA [Suspect]
     Indication: CROHN'S DISEASE
     Dosage: (INDUCTION DOSE SUBCUTANEOUS), (400 MG 1X/4 WEEKS SUBCUTANEOUS)
     Route: 058
     Dates: start: 20100701
  5. PANTOPRAZOLE [Concomitant]
  6. CRESTOR [Concomitant]

REACTIONS (7)
  - CROHN'S DISEASE [None]
  - ARTHRITIS [None]
  - HYPOAESTHESIA [None]
  - MEMORY IMPAIRMENT [None]
  - DRUG INEFFECTIVE [None]
  - FEELING COLD [None]
  - INJURY [None]
